FAERS Safety Report 6871191-8 (Version None)
Quarter: 2010Q3

REPORT INFORMATION
  Report Type: 
  Country: None (occurrence: None)
  Receive Date: 20100723
  Receipt Date: 20100714
  Transmission Date: 20110219
  Serious: Yes (Hospitalization)
  Sender: FDA-Public Use
  Company Number: DE-ROCHE-713616

PATIENT
  Sex: Female
  Weight: 62 kg

DRUGS (3)
  1. BEVACIZUMAB [Suspect]
     Indication: BREAST CANCER
     Dosage: LAST DOSE PRIOR TO SAE: 17 JUNE 2010
     Route: 042
     Dates: start: 20100617, end: 20100708
  2. EPIRUBICIN [Suspect]
     Indication: BREAST CANCER
     Dosage: LAST DOSE PRIOR TO SAE: 17 JUNE 2010.
     Route: 042
     Dates: start: 20100527, end: 20100708
  3. CYCLOPHOSPHAMIDE [Suspect]
     Indication: BREAST CANCER
     Dosage: LAST DOSE PRIOR TO SAE 17 JUNE 2010 DRUG NAME REPORTED AS CYCLOPHOSPHAMID.
     Route: 042
     Dates: start: 20100527, end: 20100708

REACTIONS (2)
  - HEADACHE [None]
  - VERTIGO [None]
